FAERS Safety Report 10931677 (Version 1)
Quarter: 2015Q1

REPORT INFORMATION
  Report Type: Spontaneous
  Country: US (occurrence: US)
  Receive Date: 20150319
  Receipt Date: 20150319
  Transmission Date: 20150721
  Serious: Yes (Other)
  Sender: FDA-Public Use
  Company Number: US-FRI-1000075313

PATIENT
  Sex: Male

DRUGS (1)
  1. NAMENDA XR [Suspect]
     Active Substance: MEMANTINE HYDROCHLORIDE

REACTIONS (4)
  - Myocardial infarction [Unknown]
  - Aneurysm [Unknown]
  - Cardiac failure congestive [Unknown]
  - Cardioversion [Unknown]
